FAERS Safety Report 21981665 (Version 1)
Quarter: 2023Q1

REPORT INFORMATION
  Report Type: Report from Study
  Country: US (occurrence: US)
  Receive Date: 20230212
  Receipt Date: 20230212
  Transmission Date: 20230418
  Serious: No
  Sender: FDA-Public Use
  Company Number: US-002147023-NVSC2023US028685

PATIENT
  Sex: Female

DRUGS (2)
  1. TEMOVATE [Suspect]
     Active Substance: CLOBETASOL PROPIONATE
     Indication: Psoriasis
     Dosage: UNK
     Route: 061
  2. TEMOVATE [Suspect]
     Active Substance: CLOBETASOL PROPIONATE
     Indication: Psoriasis
     Dosage: UNK
     Route: 061

REACTIONS (1)
  - Drug ineffective [Unknown]
